FAERS Safety Report 4418041-7 (Version None)
Quarter: 2004Q3

REPORT INFORMATION
  Report Type: 
  Country: None (occurrence: None)
  Receive Date: 20040803
  Receipt Date: 20040720
  Transmission Date: 20050211
  Serious: Yes (Hospitalization)
  Sender: FDA-Public Use
  Company Number: 04P-066-0263857-00

PATIENT
  Age: 62 Year
  Sex: Female

DRUGS (4)
  1. HUMIRA [Suspect]
     Indication: RHEUMATOID ARTHRITIS
     Dosage: 40 MG, 1 IN 2 WK, SUBCUTANEOUS
     Route: 058
     Dates: start: 20030526, end: 20040601
  2. FORMOTEROL FUMARATE [Concomitant]
  3. BUDESONIDE [Concomitant]
  4. RAMIPRIL [Concomitant]

REACTIONS (7)
  - ARTHRITIS BACTERIAL [None]
  - BLOOD GLUCOSE INCREASED [None]
  - EXTRADURAL ABSCESS [None]
  - RHEUMATOID ARTHRITIS [None]
  - STAPHYLOCOCCAL INFECTION [None]
  - URINARY TRACT INFECTION [None]
  - WHITE BLOOD CELLS URINE POSITIVE [None]
